FAERS Safety Report 7260436-0 (Version None)
Quarter: 2011Q1

REPORT INFORMATION
  Report Type: 
  Country: None (occurrence: None)
  Receive Date: 20110130
  Receipt Date: 20101118
  Transmission Date: 20110831
  Serious: No
  Sender: FDA-Public Use
  Company Number: US-ABBOTT-10P-163-0686704-00

PATIENT
  Age: 54 Year
  Sex: Male
  Weight: 102.15 kg

DRUGS (2)
  1. HUMIRA [Suspect]
     Indication: CROHN'S DISEASE
     Dates: start: 20080101, end: 20100501
  2. HUMIRA [Suspect]

REACTIONS (2)
  - ERYTHEMA [None]
  - TINEA PEDIS [None]
